FAERS Safety Report 15717902 (Version 1)
Quarter: 2018Q4

REPORT INFORMATION
  Report Type: Spontaneous
  Country: US (occurrence: US)
  Receive Date: 20181213
  Receipt Date: 20181213
  Transmission Date: 20190205
  Serious: No
  Sender: FDA-Public Use
  Company Number: US-SA-2018SA336334

PATIENT
  Age: 77 Year
  Sex: Female

DRUGS (1)
  1. ENOXAPARIN SODIUM - WINTHROP [Suspect]
     Active Substance: ENOXAPARIN SODIUM
     Indication: THROMBOSIS
     Dosage: 60 MG, BID
     Route: 065
     Dates: start: 20181203

REACTIONS (5)
  - Wrong technique in product usage process [Unknown]
  - Injection site inflammation [Unknown]
  - Product dose omission [Unknown]
  - Injection site discomfort [Unknown]
  - Injection site bruising [Unknown]
